FAERS Safety Report 10619066 (Version 1)
Quarter: 2014Q4

REPORT INFORMATION
  Report Type: Spontaneous
  Country: US (occurrence: None)
  Receive Date: 20141201
  Receipt Date: 20141201
  Transmission Date: 20150529
  Serious: Yes (Life-Threatening, Hospitalization)
  Sender: FDA-Public Use
  Company Number: None

PATIENT
  Age: 8 Year
  Sex: Female
  Weight: 34.02 kg

DRUGS (1)
  1. HYDROMORPHONE [Suspect]
     Active Substance: HYDROMORPHONE
     Indication: ANALGESIC THERAPY
     Dosage: 0.4 MG/4 ML EVERY 3 HOURS PRN INTO A VEIN
     Dates: start: 20141113, end: 20141118

REACTIONS (9)
  - Respiratory arrest [None]
  - Skin discolouration [None]
  - Accidental overdose [None]
  - Pulse absent [None]
  - Drug dispensing error [None]
  - Incorrect dose administered [None]
  - No reaction on previous exposure to drug [None]
  - Product quality issue [None]
  - Unresponsive to stimuli [None]

NARRATIVE: CASE EVENT DATE: 20141113
